FAERS Safety Report 8953528 (Version 1)
Quarter: 2012Q4

REPORT INFORMATION
  Report Type: 
  Country: GB (occurrence: GB)
  Receive Date: 20121206
  Receipt Date: 20121206
  Transmission Date: 20130627
  Serious: Yes (Death)
  Sender: FDA-Public Use
  Company Number: GB-JNJFOC-20061000299

PATIENT
  Age: 29 Year
  Sex: Female

DRUGS (5)
  1. RISPERIDONE [Suspect]
     Indication: SCHIZOPHRENIA
     Route: 048
     Dates: start: 20040514
  2. DISIPAL [Concomitant]
     Route: 048
     Dates: start: 19990325
  3. GALFER [Concomitant]
     Indication: IRON DEFICIENCY ANAEMIA
     Route: 065
     Dates: start: 20050722
  4. GAVISCON (ALGINIC/ALUMINUM/MAGNESIUM/SOD BICARB) [Concomitant]
     Route: 048
     Dates: start: 20060117
  5. LORAZEPAM [Concomitant]
     Route: 048
     Dates: end: 20060131

REACTIONS (1)
  - Sudden cardiac death [Fatal]
